FAERS Safety Report 11211060 (Version 1)
Quarter: 2015Q2

REPORT INFORMATION
  Report Type: Spontaneous
  Country: US (occurrence: US)
  Receive Date: 20150623
  Receipt Date: 20150623
  Transmission Date: 20150821
  Serious: No
  Sender: FDA-Public Use
  Company Number: US-ASTRAZENECA-2015SE59422

PATIENT
  Age: 80 Year
  Sex: Male

DRUGS (1)
  1. BYETTA [Suspect]
     Active Substance: EXENATIDE
     Dosage: 250 MCG / 2.4 ML PEN - BMS
     Route: 058

REACTIONS (2)
  - Hypoacusis [Not Recovered/Not Resolved]
  - Product quality issue [Unknown]
